FAERS Safety Report 5123813-X (Version None)
Quarter: 2006Q3

REPORT INFORMATION
  Report Type: 
  Country: None (occurrence: None)
  Receive Date: 20060811
  Receipt Date: 20060629
  Transmission Date: 20061208
  Serious: No
  Sender: FDA-Public Use
  Company Number: 200615675US

PATIENT
  Age: 53 Year
  Sex: Female

DRUGS (2)
  1. APIDRA [Suspect]
     Indication: DIABETES MELLITUS NON-INSULIN-DEPENDENT
     Dosage: 4 U TID
  2. ALTACE [Concomitant]

REACTIONS (2)
  - CHOKING SENSATION [None]
  - COUGH [None]
